FAERS Safety Report 8615907 (Version 3)
Quarter: 2012Q4

REPORT INFORMATION
  Report Type: 
  Country: US (occurrence: US)
  Receive Date: 20120614
  Receipt Date: 20121219
  Transmission Date: 20130627
  Serious: No
  Sender: FDA-Public Use
  Company Number: US-AMGEN-USASP2012031907

PATIENT
  Age: 80 Year
  Sex: Male

DRUGS (9)
  1. PROLIA [Suspect]
     Indication: OSTEOPOROSIS
     Dosage: 60 mg, q6mo
     Dates: start: 20120425
  2. VITAMIN D3 [Concomitant]
     Dosage: UNK
  3. HYDROCHLOROTHIAZIDE [Concomitant]
     Dosage: UNK
  4. SIMVASTATIN [Concomitant]
     Dosage: UNK
  5. DOXAZOSIN [Concomitant]
     Dosage: UNK
  6. GLUCOSAMINE [Concomitant]
     Dosage: UNK
  7. CALCIUM [Concomitant]
     Dosage: UNK
  8. CENTRUM SILVER [Concomitant]
     Dosage: UNK
  9. VITAMIN D [Concomitant]
     Dosage: UNK

REACTIONS (8)
  - Cystitis [Not Recovered/Not Resolved]
  - Urinary retention [Not Recovered/Not Resolved]
  - Back pain [Unknown]
  - Neck pain [Not Recovered/Not Resolved]
  - Muscular weakness [Not Recovered/Not Resolved]
  - Chondropathy [Not Recovered/Not Resolved]
  - Tooth disorder [Unknown]
  - Musculoskeletal pain [Not Recovered/Not Resolved]
